FAERS Safety Report 14305132 (Version 1)
Quarter: 2017Q4

REPORT INFORMATION
  Report Type: Spontaneous
  Country: JP (occurrence: JP)
  Receive Date: 20171219
  Receipt Date: 20171219
  Transmission Date: 20180321
  Serious: Yes (Hospitalization)
  Sender: FDA-Public Use
  Company Number: JP-OTSUKA-03100-JPN-07-0311

PATIENT
  Age: 25 Year
  Sex: Female

DRUGS (13)
  1. ABILIFY [Suspect]
     Active Substance: ARIPIPRAZOLE
     Indication: SCHIZOPHRENIA
     Dosage: 24 MG, SINGLE
     Route: 048
     Dates: start: 20070621
  2. LULLAN [Concomitant]
     Active Substance: PEROSPIRONE HYDROCHLORIDE
     Dosage: 8 MG, SINGLE
     Route: 048
     Dates: start: 20070517, end: 20070523
  3. ABILIFY [Suspect]
     Active Substance: ARIPIPRAZOLE
     Dosage: UNK UNKNOWN, UNKNOWN
     Route: 048
  4. WYPAX [Concomitant]
     Active Substance: LORAZEPAM
     Indication: SCHIZOPHRENIA
     Dosage: 2 MG, SINGLE
     Route: 048
     Dates: start: 20060814, end: 20071003
  5. ABILIFY [Suspect]
     Active Substance: ARIPIPRAZOLE
     Dosage: 12 MG, SINGLE
     Route: 048
     Dates: start: 20070419, end: 20070506
  6. SEROQUEL [Concomitant]
     Active Substance: QUETIAPINE FUMARATE
     Indication: SCHIZOPHRENIA
     Dosage: 100 MG, SINGLE
     Route: 048
     Dates: start: 20060803, end: 20070523
  7. ABILIFY [Suspect]
     Active Substance: ARIPIPRAZOLE
     Dosage: 6 MG, SINGLE
     Route: 048
     Dates: start: 20070405, end: 20070418
  8. ABILIFY [Suspect]
     Active Substance: ARIPIPRAZOLE
     Dosage: 15 MG, SINGLE
     Route: 048
     Dates: start: 20070507, end: 20070530
  9. BENZALIN [Concomitant]
     Active Substance: NITRAZEPAM
     Indication: PRODUCT USED FOR UNKNOWN INDICATION
     Dosage: 20 MG, SINGLE
     Route: 048
     Dates: start: 20060727, end: 20070711
  10. ABILIFY [Suspect]
     Active Substance: ARIPIPRAZOLE
     Dosage: 18 MG, SINGLE
     Route: 048
     Dates: start: 20070531, end: 20070620
  11. TETRAMIDE [Concomitant]
     Active Substance: MIANSERIN
     Indication: PRODUCT USED FOR UNKNOWN INDICATION
     Dosage: 10 MG, SINGLE
     Route: 048
     Dates: start: 20070528, end: 20070530
  12. LULLAN [Concomitant]
     Active Substance: PEROSPIRONE HYDROCHLORIDE
     Indication: SCHIZOPHRENIA
     Dosage: 16 MG, SINGLE
     Route: 048
     Dates: start: 20060727, end: 20070516
  13. BENZALIN [Concomitant]
     Active Substance: NITRAZEPAM
     Dosage: 10 MG, SINGLE
     Route: 048
     Dates: start: 20070712, end: 20080220

REACTIONS (3)
  - Threatened labour [Recovering/Resolving]
  - Exposure during pregnancy [Recovered/Resolved]
  - Normal newborn [Unknown]

NARRATIVE: CASE EVENT DATE: 200801
